FAERS Safety Report 7442137-9 (Version None)
Quarter: 2011Q2

REPORT INFORMATION
  Report Type: 
  Country: None (occurrence: None)
  Receive Date: 20110428
  Receipt Date: 20110415
  Transmission Date: 20111010
  Serious: Yes (Other)
  Sender: FDA-Public Use
  Company Number: PHHY2011CA32305

PATIENT
  Sex: Male

DRUGS (2)
  1. TASIGNA [Suspect]
  2. ALDACTONE [Concomitant]

REACTIONS (3)
  - IIIRD NERVE PARALYSIS [None]
  - DIZZINESS [None]
  - GYNAECOMASTIA [None]
